FAERS Safety Report 4957777-6 (Version None)
Quarter: 2006Q1

REPORT INFORMATION
  Report Type: 
  Country: None (occurrence: None)
  Receive Date: 20060324
  Receipt Date: 20060317
  Transmission Date: 20060701
  Serious: Yes (Hospitalization)
  Sender: FDA-Public Use
  Company Number: FR200601001688

PATIENT
  Age: 68 Year
  Sex: Male

DRUGS (5)
  1. GEMZAR [Suspect]
     Indication: PANCREATIC NEOPLASM
     Dosage: INTRAVENOUS
     Route: 042
     Dates: start: 20050601, end: 20050924
  2. POTASSIUM CHLORIDE [Concomitant]
  3. PARIET /JPN/ RABEPRAZOLE SODIUM [Concomitant]
  4. XATRAL - SLOW RELEASE (ALFUZOSIN HYDROCHLORIDE) [Concomitant]
  5. CREON [Concomitant]

REACTIONS (5)
  - ANAEMIA [None]
  - LYMPHANGIOSIS CARCINOMATOSA [None]
  - OEDEMA PERIPHERAL [None]
  - PLEURAL EFFUSION [None]
  - RESPIRATORY DISTRESS [None]
